FAERS Safety Report 23967116 (Version 1)
Quarter: 2024Q2

REPORT INFORMATION
  Report Type: Spontaneous
  Country: US (occurrence: None)
  Receive Date: 20240611
  Receipt Date: 20240611
  Transmission Date: 20240715
  Serious: Yes (Death, Life-Threatening, Hospitalization)
  Sender: FDA-Public Use
  Company Number: None

PATIENT
  Age: 67 Year
  Sex: Female
  Weight: 65.25 kg

DRUGS (2)
  1. JARDIANCE [Suspect]
     Active Substance: EMPAGLIFLOZIN
     Indication: Chronic kidney disease
     Dates: start: 20231027, end: 20240514
  2. JARDIANCE [Suspect]
     Active Substance: EMPAGLIFLOZIN
     Indication: Diabetes mellitus

REACTIONS (8)
  - Soft tissue infection [None]
  - Sepsis [None]
  - Hypotension [None]
  - Necrotising soft tissue infection [None]
  - Pupil fixed [None]
  - Gastrointestinal sounds abnormal [None]
  - Cerebral infarction [None]
  - Apnoea [None]

NARRATIVE: CASE EVENT DATE: 20240514
